FAERS Safety Report 19436242 (Version 1)
Quarter: 2021Q2

REPORT INFORMATION
  Report Type: Spontaneous
  Country: US (occurrence: US)
  Receive Date: 20210618
  Receipt Date: 20210618
  Transmission Date: 20210717
  Serious: No
  Sender: FDA-Public Use
  Company Number: US-ASTRAZENECA-2021A299900

PATIENT
  Sex: Female

DRUGS (2)
  1. BYDUREON BCISE [Suspect]
     Active Substance: EXENATIDE
     Indication: WEIGHT CONTROL
     Dosage: WEEKLY FOR 2 YEARS
     Route: 058
  2. BYDUREON BCISE [Suspect]
     Active Substance: EXENATIDE
     Indication: BLOOD GLUCOSE ABNORMAL
     Dosage: WEEKLY FOR 2 YEARS
     Route: 058

REACTIONS (3)
  - Product dose omission issue [Unknown]
  - Drug delivery system issue [Unknown]
  - Weight increased [Unknown]
